FAERS Safety Report 20474795 (Version 1)
Quarter: 2022Q1

REPORT INFORMATION
  Report Type: Report from Study
  Country: RU (occurrence: RU)
  Receive Date: 20220215
  Receipt Date: 20220215
  Transmission Date: 20220423
  Serious: Yes (Other)
  Sender: FDA-Public Use
  Company Number: RU-NOVARTISPH-NVSC2020RU266774

PATIENT
  Age: 68 Year
  Sex: Female

DRUGS (2)
  1. LETROZOLE [Suspect]
     Active Substance: LETROZOLE
     Indication: Product used for unknown indication
     Dosage: UNK (RIBOCICLIB 600 MG DAILY FOR 21 DAYS, LETROZOLE 2.5 MG DAILY 28-DAY CYCLE)
     Route: 065
     Dates: start: 2020
  2. RIBOCICLIB [Suspect]
     Active Substance: RIBOCICLIB
     Indication: Product used for unknown indication
     Dosage: UNK (RIBOCICLIB 600 MG DAILY FOR 21 DAYS, LETROZOLE 2.5 MG DAILY 28-DAY CYCLE)
     Route: 065

REACTIONS (3)
  - Invasive ductal breast carcinoma [Unknown]
  - Pulmonary mass [Unknown]
  - Disease progression [Unknown]

NARRATIVE: CASE EVENT DATE: 20200114
